FAERS Safety Report 7760455-1 (Version None)
Quarter: 2011Q3

REPORT INFORMATION
  Report Type: 
  Country: None (occurrence: None)
  Receive Date: 20110919
  Receipt Date: 20110908
  Transmission Date: 20111222
  Serious: Yes (Death, Hospitalization)
  Sender: FDA-Public Use
  Company Number: US-GENZYME-RENA-1001292

PATIENT
  Sex: Male
  Weight: 100 kg

DRUGS (2)
  1. RENAGEL [Suspect]
     Indication: HYPERPHOSPHATAEMIA
     Route: 065
  2. RENVELA [Suspect]
     Indication: HYPERPHOSPHATAEMIA
     Dosage: 4.8 G, TID
     Route: 048
     Dates: start: 20101110, end: 20110328

REACTIONS (2)
  - CATHETER SITE HAEMORRHAGE [None]
  - ARTERIOSCLEROSIS [None]
